FAERS Safety Report 6890758-4 (Version None)
Quarter: 2010Q3

REPORT INFORMATION
  Report Type: 
  Country: None (occurrence: None)
  Receive Date: 20100731
  Receipt Date: 20090319
  Transmission Date: 20110219
  Serious: Yes (Other)
  Sender: FDA-Public Use
  Company Number: US-PFIZER INC-2008155950

PATIENT
  Sex: Male

DRUGS (4)
  1. LIPITOR [Suspect]
     Indication: CARDIOVASCULAR DISORDER
     Dosage: 40 MG, 1X/DAY
     Dates: start: 20081216, end: 20081216
  2. ACCUPRIL [Concomitant]
     Dosage: UNK
  3. PROTONIX [Concomitant]
     Dosage: UNK
  4. ZYRTEC-D 12 HOUR [Concomitant]
     Dosage: UNK

REACTIONS (1)
  - SWELLING [None]
